FAERS Safety Report 24871523 (Version 1)
Quarter: 2025Q1

REPORT INFORMATION
  Report Type: Spontaneous
  Country: KR (occurrence: KR)
  Receive Date: 20250122
  Receipt Date: 20250122
  Transmission Date: 20250409
  Serious: Yes (Death)
  Sender: BOEHRINGER INGELHEIM
  Company Number: KR-BoehringerIngelheim-2025-BI-003423

PATIENT
  Age: 58 Year
  Sex: Female

DRUGS (1)
  1. OFEV [Suspect]
     Active Substance: NINTEDANIB
     Indication: Interstitial lung disease
     Dates: start: 20230809

REACTIONS (2)
  - Sepsis [Fatal]
  - Gastroenteritis [Fatal]

NARRATIVE: CASE EVENT DATE: 20241209
